FAERS Safety Report 5647310-8 (Version None)
Quarter: 2008Q1

REPORT INFORMATION
  Report Type: 
  Country: None (occurrence: None)
  Receive Date: 20080228
  Receipt Date: 20080205
  Transmission Date: 20080703
  Serious: Yes (Life-Threatening, Other)
  Sender: FDA-Public Use
  Company Number: ENT 2008-0017

PATIENT
  Age: 62 Year
  Sex: Female

DRUGS (8)
  1. COMTAN [Suspect]
     Indication: PARKINSON'S DISEASE
     Dosage: 600 MG ORAL
     Route: 048
     Dates: start: 20070522, end: 20080126
  2. EC DOPARL [Concomitant]
  3. DOPS [Concomitant]
  4. PRAMIPEXOLE DIHYDROCHLORIDE [Concomitant]
  5. METLIGINE [Concomitant]
  6. GLYSENNID [Concomitant]
  7. MAGLAX [Concomitant]
  8. PURGATIVES AND CLYSTERS [Concomitant]

REACTIONS (6)
  - CARDIO-RESPIRATORY ARREST [None]
  - CONSTIPATION [None]
  - INTESTINAL PERFORATION [None]
  - NAUSEA [None]
  - SEPSIS [None]
  - SHOCK [None]
